FAERS Safety Report 12771069 (Version 1)
Quarter: 2016Q3

REPORT INFORMATION
  Report Type: Spontaneous
  Country: JP (occurrence: JP)
  Receive Date: 20160922
  Receipt Date: 20160922
  Transmission Date: 20161109
  Serious: Yes (Congenital Anomaly)
  Sender: FDA-Public Use
  Company Number: JP-ABBVIE-16P-087-1732344-00

PATIENT
  Sex: Female
  Weight: 2.23 kg

DRUGS (1)
  1. KALETRA [Suspect]
     Active Substance: LOPINAVIR\RITONAVIR
     Indication: MATERNAL EXPOSURE TIMING UNSPECIFIED
     Route: 064

REACTIONS (5)
  - Iris coloboma [Unknown]
  - Hypoglycaemia [Unknown]
  - Choroidal coloboma [Unknown]
  - Hypocalcaemia [Unknown]
  - Foetal exposure during pregnancy [Unknown]
